FAERS Safety Report 10064826 (Version 1)
Quarter: 2014Q1

REPORT INFORMATION
  Report Type: Spontaneous
  Country: US (occurrence: None)
  Receive Date: 20140328
  Receipt Date: 20140328
  Transmission Date: 20141002
  Serious: No
  Sender: FDA-Public Use
  Company Number: 1000053050

PATIENT
  Age: 75 Year
  Sex: Male

DRUGS (12)
  1. LINZESS [Suspect]
     Indication: CONSTIPATION
     Dosage: 1 IN 1 D
     Route: 048
     Dates: start: 201401, end: 201401
  2. ATORVASTATIN [Concomitant]
  3. CLOPIDOGREL [Concomitant]
  4. ATENOLOL [Concomitant]
  5. HYDROCHLOROTHIAZIDE [Concomitant]
  6. BENICAR (OLMESARTAN MEDOXOMIL) [Concomitant]
  7. ASPIRIN (ACETYLSALICYLIC ACID) [Concomitant]
  8. LEVOTHYROXINE (LEVOTHYROXINE SODIUM) [Concomitant]
  9. DEXILANT (DEXLANSOPRAZOLE) [Concomitant]
  10. POTASSIUM [Concomitant]
  11. NIACIN (NICOTINIC ACID) [Concomitant]
  12. SINGULAR (MONTELUKAST SODIUM) [Concomitant]

REACTIONS (2)
  - Drug ineffective [None]
  - Off label use [None]
